FAERS Safety Report 21018046 (Version 1)
Quarter: 2022Q2

REPORT INFORMATION
  Report Type: Spontaneous
  Country: US (occurrence: None)
  Receive Date: 20220627
  Receipt Date: 20220627
  Transmission Date: 20220720
  Serious: No
  Sender: FDA-Public Use
  Company Number: None

PATIENT
  Age: 78 Year
  Sex: Female

DRUGS (1)
  1. TYMLOS [Suspect]
     Active Substance: ABALOPARATIDE
     Indication: Senile osteoporosis
     Dosage: INJECT 80MCG  SUBCUTANEOUSLY DAILY  AS DIRECTED?
     Route: 058
     Dates: start: 202205

REACTIONS (2)
  - Dyspnoea [None]
  - Therapy interrupted [None]
